FAERS Safety Report 8153101-9 (Version None)
Quarter: 2012Q1

REPORT INFORMATION
  Report Type: 
  Country: None (occurrence: None)
  Receive Date: 20120221
  Receipt Date: 20120213
  Transmission Date: 20120608
  Serious: Yes (Hospitalization)
  Sender: FDA-Public Use
  Company Number: US-ASTELLAS-2012US000738

PATIENT
  Sex: Male
  Weight: 90 kg

DRUGS (3)
  1. TACROLIMUS [Suspect]
     Indication: DERMATITIS ATOPIC
     Dosage: 0.03 %, BID
     Route: 061
     Dates: start: 20010328
  2. BUDESONIDE [Concomitant]
     Indication: ASTHMA
     Dosage: 180 UG, BID
     Route: 055
     Dates: start: 20071008
  3. ALBUTEROL [Concomitant]
     Indication: ASTHMA
     Dosage: 2 DF, PRN
     Route: 055
     Dates: start: 20071007

REACTIONS (3)
  - MYOSITIS [None]
  - SACROILIITIS [None]
  - STAPHYLOCOCCAL BACTERAEMIA [None]
